FAERS Safety Report 22181171 (Version 1)
Quarter: 2023Q2

REPORT INFORMATION
  Report Type: Spontaneous
  Country: US (occurrence: None)
  Receive Date: 20230405
  Receipt Date: 20230405
  Transmission Date: 20230722
  Serious: No
  Sender: FDA-Public Use
  Company Number: None

PATIENT
  Age: 52 Year
  Sex: Male
  Weight: 103.95 kg

DRUGS (1)
  1. TESTOSTERONE CYPIONATE [Suspect]
     Active Substance: TESTOSTERONE CYPIONATE
     Indication: Hypogonadism
     Dosage: OTHER QUANTITY : 1 CC;?
     Dates: start: 20190309, end: 20230320

REACTIONS (7)
  - Fatigue [None]
  - Depression [None]
  - Irritability [None]
  - Affect lability [None]
  - Performance status decreased [None]
  - Marital problem [None]
  - Erectile dysfunction [None]

NARRATIVE: CASE EVENT DATE: 20230330
